FAERS Safety Report 7704753-6 (Version None)
Quarter: 2011Q3

REPORT INFORMATION
  Report Type: 
  Country: None (occurrence: None)
  Receive Date: 20110823
  Receipt Date: 20110816
  Transmission Date: 20111222
  Serious: Yes (Hospitalization, Other)
  Sender: FDA-Public Use
  Company Number: JP-B.I. PHARMACEUTICALS,INC./RIDGEFIELD-2011-BP-17009NB

PATIENT
  Sex: Female

DRUGS (11)
  1. BONOTEO [Concomitant]
     Indication: OSTEOPOROSIS
     Route: 065
     Dates: start: 20090423
  2. FLUCAM [Concomitant]
     Indication: RHEUMATOID ARTHRITIS
     Route: 065
     Dates: start: 20080117
  3. NORVASC [Concomitant]
     Indication: HYPERTENSION
     Dosage: 2.5 MG
     Route: 065
     Dates: start: 20081117
  4. PREDNISOLONE [Concomitant]
     Indication: RHEUMATOID ARTHRITIS
     Dosage: 4 MG
     Route: 065
     Dates: start: 20080128
  5. REBAMIPIDE [Concomitant]
     Indication: GASTRIC ULCER
     Route: 065
     Dates: start: 20090619
  6. LANSOPRAZOLE [Concomitant]
     Indication: GASTROOESOPHAGEAL REFLUX DISEASE
     Route: 065
     Dates: start: 20101113
  7. URSO 250 [Concomitant]
     Indication: CHOLESTASIS
     Route: 065
     Dates: start: 20090926
  8. PRADAXA [Suspect]
     Indication: ATRIAL FIBRILLATION
     Dosage: 220 MG
     Route: 048
     Dates: start: 20110318, end: 20110705
  9. SUNRYTHM [Concomitant]
     Indication: ATRIAL FIBRILLATION
     Route: 065
     Dates: start: 20110121
  10. METHYCOBAL [Concomitant]
     Indication: NEUROPATHY PERIPHERAL
     Route: 065
     Dates: start: 20090619
  11. METHOTREXATE [Concomitant]
     Indication: RHEUMATOID ARTHRITIS
     Route: 065
     Dates: start: 20080730

REACTIONS (5)
  - OEDEMA PERIPHERAL [None]
  - OEDEMA [None]
  - MELAENA [None]
  - COLITIS ISCHAEMIC [None]
  - SICK SINUS SYNDROME [None]
